FAERS Safety Report 7411491-6 (Version None)
Quarter: 2011Q2

REPORT INFORMATION
  Report Type: 
  Country: None (occurrence: None)
  Receive Date: 20110413
  Receipt Date: 20110401
  Transmission Date: 20111010
  Serious: Yes (Hospitalization)
  Sender: FDA-Public Use
  Company Number: PHFR2011GB02313

PATIENT
  Sex: Male

DRUGS (4)
  1. TEMAZEPAM [Suspect]
  2. PARACETAMOL [Suspect]
  3. CLOZARIL [Suspect]
     Indication: SCHIZOPHRENIA
     Dosage: UNK DF, UNK
     Route: 048
     Dates: start: 20031118
  4. SALICYLATES [Suspect]

REACTIONS (3)
  - OVERDOSE [None]
  - ALANINE AMINOTRANSFERASE INCREASED [None]
  - LIVER FUNCTION TEST ABNORMAL [None]
